FAERS Safety Report 4295176-3 (Version None)
Quarter: 2004Q1

REPORT INFORMATION
  Report Type: 
  Country: None (occurrence: None)
  Receive Date: 20040212
  Receipt Date: 20040128
  Transmission Date: 20041129
  Serious: Yes (Hospitalization)
  Sender: FDA-Public Use
  Company Number: 183129

PATIENT
  Age: 53 Year
  Sex: Female
  Weight: 75.7507 kg

DRUGS (6)
  1. AVONEX [Suspect]
     Indication: MULTIPLE SCLEROSIS
     Dosage: 30 MCG QW IM
     Route: 030
     Dates: start: 20000301
  2. TOPROL-XL [Concomitant]
  3. LASIX [Concomitant]
  4. PAXIL [Concomitant]
  5. ZETIA [Concomitant]
  6. DETROL [Concomitant]

REACTIONS (5)
  - CARDIOMYOPATHY [None]
  - CONDITION AGGRAVATED [None]
  - EPIGLOTTITIS [None]
  - HEART RATE INCREASED [None]
  - MULTIPLE SCLEROSIS [None]
